FAERS Safety Report 24251524 (Version 1)
Quarter: 2024Q3

REPORT INFORMATION
  Report Type: Report from Study
  Country: US (occurrence: US)
  Receive Date: 20240827
  Receipt Date: 20240827
  Transmission Date: 20241017
  Serious: Yes (Hospitalization, Other)
  Sender: ABBVIE
  Company Number: US-ABBVIE-5888193

PATIENT
  Sex: Female

DRUGS (1)
  1. HUMIRA [Suspect]
     Active Substance: ADALIMUMAB
     Indication: Psoriasis
     Dosage: CITRATE FREE
     Route: 058
     Dates: start: 20240613

REACTIONS (7)
  - Sepsis [Recovering/Resolving]
  - Fall [Recovering/Resolving]
  - Gastrointestinal haemorrhage [Recovering/Resolving]
  - Nephrolithiasis [Recovering/Resolving]
  - Cerebrovascular accident [Unknown]
  - Eye disorder [Unknown]
  - Haematemesis [Unknown]

NARRATIVE: CASE EVENT DATE: 20240101
